FAERS Safety Report 5728283-6 (Version None)
Quarter: 2008Q2

REPORT INFORMATION
  Report Type: 
  Country: None (occurrence: None)
  Receive Date: 20080502
  Receipt Date: 20080502
  Transmission Date: 20081010
  Serious: Yes (Hospitalization)
  Sender: FDA-Public Use
  Company Number: None

PATIENT
  Age: 59 Year
  Sex: Female
  Weight: 95.2554 kg

DRUGS (2)
  1. LEVAQUIN [Suspect]
     Indication: BRONCHITIS
     Dosage: 750MG ONCE IV DRIP
     Route: 041
     Dates: start: 20080319, end: 20080319
  2. LEVAQUIN [Suspect]
     Indication: PNEUMONIA
     Dosage: 750MG ONCE IV DRIP
     Route: 041
     Dates: start: 20080319, end: 20080319

REACTIONS (1)
  - STEVENS-JOHNSON SYNDROME [None]
